FAERS Safety Report 9267398 (Version 1)
Quarter: 2013Q2

REPORT INFORMATION
  Report Type: Spontaneous
  Country: DE (occurrence: DE)
  Receive Date: 20130502
  Receipt Date: 20130502
  Transmission Date: 20140414
  Serious: Yes (Other)
  Sender: FDA-Public Use
  Company Number: DE-JNJFOC-20130416466

PATIENT
  Age: 32 Year
  Sex: Female
  Weight: 86 kg

DRUGS (7)
  1. IBUPROFEN [Suspect]
     Indication: ANKYLOSING SPONDYLITIS
     Dosage: PRE-CONCEPTION
     Route: 048
  2. IBUPROFEN [Suspect]
     Indication: ANKYLOSING SPONDYLITIS
     Dosage: 4.1 - 33.6 GESTATIONAL WEEK
     Route: 048
     Dates: start: 20120301, end: 20120925
  3. KADEFUNGIN [Suspect]
     Indication: VULVOVAGINAL MYCOTIC INFECTION
     Dosage: 10-12 GESTATION WEEK
     Route: 067
  4. DAIVOBET [Suspect]
     Indication: PSORIASIS
     Dosage: 0-10 GESTATTION WEEK
     Route: 003
     Dates: start: 20120201
  5. MIFEGYNE [Suspect]
     Indication: ABORTION INDUCED
     Dosage: 33.6-33.6 GESTATIONAL WEEK
     Route: 048
     Dates: start: 20120925, end: 20120925
  6. CYTOTEC [Suspect]
     Indication: ABORTION INDUCED
     Dosage: 33.6-33.6 GESTATIONAL WEEK
     Route: 067
     Dates: start: 20120925, end: 20120925
  7. FOLIO FORTE [Concomitant]
     Indication: PROPHYLAXIS OF NEURAL TUBE DEFECT
     Dosage: 0-27 GESTATION WEEK
     Route: 048
     Dates: start: 20120201

REACTIONS (4)
  - Oligohydramnios [Not Recovered/Not Resolved]
  - Placental insufficiency [Not Recovered/Not Resolved]
  - Exposure during pregnancy [Unknown]
  - Abortion induced [None]
